FAERS Safety Report 11535474 (Version 1)
Quarter: 2015Q3

REPORT INFORMATION
  Report Type: Spontaneous
  Country: US (occurrence: None)
  Receive Date: 20150921
  Receipt Date: 20150921
  Transmission Date: 20151125
  Serious: Yes (Hospitalization)
  Sender: FDA-Public Use
  Company Number: None

PATIENT
  Age: 67 Year
  Sex: Female
  Weight: 63.2 kg

DRUGS (1)
  1. BEVACIZUMAB [Suspect]
     Active Substance: BEVACIZUMAB
     Indication: LUNG ADENOCARCINOMA METASTATIC
     Route: 042
     Dates: start: 20141023, end: 20150618

REACTIONS (4)
  - Nuclear magnetic resonance imaging brain abnormal [None]
  - Posterior reversible encephalopathy syndrome [None]
  - Hyponatraemia [None]
  - Mental status changes [None]

NARRATIVE: CASE EVENT DATE: 20150804
